FAERS Safety Report 20439591 (Version 1)
Quarter: 2022Q1

REPORT INFORMATION
  Report Type: Spontaneous
  Country: US (occurrence: None)
  Receive Date: 20220205
  Receipt Date: 20220205
  Transmission Date: 20220423
  Serious: Yes (Death, Hospitalization)
  Sender: FDA-Public Use
  Company Number: None

PATIENT
  Sex: Male
  Weight: 73 kg

DRUGS (6)
  1. CYTARABINE [Suspect]
     Active Substance: CYTARABINE
  2. DAUNORUBICIN [Concomitant]
  3. METHOTREXATE [Concomitant]
     Active Substance: METHOTREXATE
  4. PEG-L-ASPARAGINASE (PEGASPARGASE,ONCOSPAR) [Concomitant]
  5. PRENISOLONE [Concomitant]
  6. VINCRISTINE SULFATE [Concomitant]
     Active Substance: VINCRISTINE SULFATE

REACTIONS (16)
  - Drug intolerance [None]
  - Multiple organ dysfunction syndrome [None]
  - Bone marrow disorder [None]
  - Therapy cessation [None]
  - Renal failure [None]
  - Generalised oedema [None]
  - Pulmonary oedema [None]
  - Systemic candida [None]
  - Pneumonia [None]
  - Candida infection [None]
  - Renal abscess [None]
  - Calculus urethral [None]
  - Proctitis [None]
  - Stevens-Johnson syndrome [None]
  - Respiratory failure [None]
  - Colitis [None]

NARRATIVE: CASE EVENT DATE: 20220116
